FAERS Safety Report 10092552 (Version 1)
Quarter: 2014Q2

REPORT INFORMATION
  Report Type: Spontaneous
  Country: US (occurrence: US)
  Receive Date: 20140421
  Receipt Date: 20140421
  Transmission Date: 20141212
  Serious: No
  Sender: FDA-Public Use
  Company Number: US-SANOFI-AVENTIS-2013SA035142

PATIENT
  Age: 85 Year
  Sex: Male

DRUGS (6)
  1. ALLEGRA [Suspect]
     Indication: NASAL DISORDER
     Dosage: TAKEN FROM:10 DAYS AGO?FREQUENCY:1- THAN 2 TO TRY TO MAKE IT MORE EFFECTIVE
     Route: 048
     Dates: start: 20130315, end: 20130330
  2. METOPROLOL [Concomitant]
     Indication: CARDIAC DISORDER
  3. TEMAZEPAM [Concomitant]
     Indication: SLEEP DISORDER
  4. UNKNOWDRUG [Concomitant]
     Indication: BLOOD CHOLESTEROL
  5. TRAMADOL [Concomitant]
     Indication: PAIN
     Dosage: DOSE: 4 TO 5, STRENGTH: 50 MG
  6. NAPROXEN [Concomitant]
     Indication: PAIN
     Dosage: DOSE: 2 OR 3, STRENGTH: 200 MG

REACTIONS (1)
  - Drug ineffective [Unknown]
